FAERS Safety Report 9835472 (Version 1)
Quarter: 2014Q1

REPORT INFORMATION
  Report Type: Spontaneous
  Country: US (occurrence: US)
  Receive Date: 20140122
  Receipt Date: 20140122
  Transmission Date: 20141002
  Serious: No
  Sender: FDA-Public Use
  Company Number: US-BRISTOL-MYERS SQUIBB COMPANY-19649532

PATIENT
  Age: 55 Year
  Sex: Female
  Weight: 133.78 kg

DRUGS (6)
  1. ELIQUIS [Suspect]
     Indication: ATRIAL FIBRILLATION
  2. PRILOSEC [Concomitant]
  3. LANTUS [Concomitant]
  4. METOPROLOL [Concomitant]
  5. HYDROCODONE [Concomitant]
  6. SOMA [Concomitant]

REACTIONS (2)
  - Dyspnoea [Unknown]
  - Wheezing [Unknown]
